FAERS Safety Report 4510202-1 (Version None)
Quarter: 2004Q4

REPORT INFORMATION
  Report Type: 
  Country: None (occurrence: None)
  Receive Date: 20041124
  Receipt Date: 20030130
  Transmission Date: 20050328
  Serious: Yes (Hospitalization)
  Sender: FDA-Public Use
  Company Number: US-MERCK-0302USA00109

PATIENT
  Age: 57 Year
  Sex: Female
  Weight: 100 kg

DRUGS (6)
  1. VIOXX [Suspect]
     Indication: LOCALISED OSTEOARTHRITIS
     Route: 048
     Dates: start: 20000101, end: 20010101
  2. VIOXX [Suspect]
     Route: 048
     Dates: end: 20010821
  3. DIAZIDE [Concomitant]
     Route: 065
  4. LOPRESSOR [Concomitant]
     Route: 065
  5. LOPRESSOR [Concomitant]
     Route: 065
     Dates: start: 20000401
  6. ZOCOR [Concomitant]
     Route: 048
     Dates: start: 20000401

REACTIONS (58)
  - ANGINA PECTORIS [None]
  - AORTIC ATHEROSCLEROSIS [None]
  - AORTIC VALVE INCOMPETENCE [None]
  - ARRHYTHMIA [None]
  - ARRHYTHMIA SUPRAVENTRICULAR [None]
  - ARTHRALGIA [None]
  - ATRIAL FIBRILLATION [None]
  - ATRIAL FLUTTER [None]
  - BACK PAIN [None]
  - BLOOD CHOLESTEROL INCREASED [None]
  - BRONCHITIS [None]
  - CARDIAC DISORDER [None]
  - CARDIAC ENZYMES INCREASED [None]
  - CARDIAC FAILURE CONGESTIVE [None]
  - CARDIAC VENTRICULAR DISORDER [None]
  - CAROTID ARTERY DISEASE [None]
  - CEREBRAL ISCHAEMIA [None]
  - CEREBROVASCULAR ACCIDENT [None]
  - CEREBROVASCULAR DISORDER [None]
  - CHEST DISCOMFORT [None]
  - CHEST PAIN [None]
  - CORONARY ARTERY DISEASE [None]
  - DILATATION ATRIAL [None]
  - DIVERTICULUM INTESTINAL [None]
  - DYSARTHRIA [None]
  - DYSPNOEA [None]
  - DYSPNOEA EXERTIONAL [None]
  - ELECTROCARDIOGRAM ST SEGMENT DEPRESSION [None]
  - ELECTROCARDIOGRAM T WAVE INVERSION [None]
  - EMOTIONAL DISTRESS [None]
  - EUSTACHIAN TUBE OBSTRUCTION [None]
  - FATIGUE [None]
  - FLANK PAIN [None]
  - HAEMATURIA [None]
  - HEART RATE IRREGULAR [None]
  - HYDRONEPHROSIS [None]
  - HYPERTENSION [None]
  - HYPERTROPHY [None]
  - INJURY [None]
  - INTRACARDIAC THROMBUS [None]
  - LIPIDS INCREASED [None]
  - LUNG INFILTRATION [None]
  - MITRAL VALVE INCOMPETENCE [None]
  - MYOCARDIAL INFARCTION [None]
  - NEOPLASM [None]
  - OVERDOSE [None]
  - PNEUMONIA [None]
  - PRURITUS [None]
  - RASH PAPULAR [None]
  - RENAL DISORDER [None]
  - SCAR [None]
  - SEBACEOUS GLAND DISORDER [None]
  - SPEECH DISORDER [None]
  - THROMBOSIS [None]
  - TRANSIENT ISCHAEMIC ATTACK [None]
  - TRICUSPID VALVE INCOMPETENCE [None]
  - UPPER RESPIRATORY TRACT INFECTION [None]
  - VENTRICULAR HYPERTROPHY [None]
